FAERS Safety Report 8200175-2 (Version None)
Quarter: 2012Q1

REPORT INFORMATION
  Report Type: 
  Country: None (occurrence: None)
  Receive Date: 20120306
  Receipt Date: 20120222
  Transmission Date: 20120608
  Serious: Yes (Hospitalization)
  Sender: FDA-Public Use
  Company Number: IMP_05757_2012

PATIENT
  Age: 57 Year
  Sex: Female

DRUGS (1)
  1. METFORMIN HCL [Suspect]
     Indication: TYPE 2 DIABETES MELLITUS
     Dosage: (850 MG TID ORAL)
     Route: 048

REACTIONS (21)
  - DYSPNOEA [None]
  - RESPIRATORY FAILURE [None]
  - NAUSEA [None]
  - HYPOXIC-ISCHAEMIC ENCEPHALOPATHY [None]
  - RENAL IMPAIRMENT [None]
  - PULMONARY OEDEMA [None]
  - HYPOXIA [None]
  - HYPERLACTACIDAEMIA [None]
  - DIARRHOEA [None]
  - VENTRICULAR HYPOKINESIA [None]
  - ACUTE RESPIRATORY DISTRESS SYNDROME [None]
  - VOMITING [None]
  - HYPOKINESIA [None]
  - LACTIC ACIDOSIS [None]
  - SHOCK [None]
  - DEHYDRATION [None]
  - CIRCULATORY COLLAPSE [None]
  - CARDIO-RESPIRATORY ARREST [None]
  - MENTAL STATUS CHANGES [None]
  - METABOLIC ACIDOSIS [None]
  - DEPRESSED LEVEL OF CONSCIOUSNESS [None]
